FAERS Safety Report 21350501 (Version 2)
Quarter: 2022Q4

REPORT INFORMATION
  Report Type: Report from Study
  Country: US (occurrence: US)
  Receive Date: 20220919
  Receipt Date: 20221212
  Transmission Date: 20230113
  Serious: No
  Sender: FDA-Public Use
  Company Number: US-OTSUKA-2022_044933

PATIENT
  Sex: Female
  Weight: 58.97 kg

DRUGS (1)
  1. TOLVAPTAN [Suspect]
     Active Substance: TOLVAPTAN
     Indication: Hyponatraemia
     Dosage: 15 MG
     Route: 065

REACTIONS (3)
  - Alcohol use [Not Recovered/Not Resolved]
  - General physical health deterioration [Unknown]
  - Incorrect product administration duration [Unknown]
